FAERS Safety Report 22146354 (Version 1)
Quarter: 2023Q1

REPORT INFORMATION
  Report Type: Spontaneous
  Country: US (occurrence: None)
  Receive Date: 20230327
  Receipt Date: 20230327
  Transmission Date: 20230417
  Serious: No
  Sender: FDA-Public Use
  Company Number: None

PATIENT
  Sex: Female

DRUGS (2)
  1. WELIREG [Suspect]
     Active Substance: BELZUTIFAN
     Indication: Malignant urinary tract neoplasm
  2. MIRTAZAPINE [Suspect]
     Active Substance: MIRTAZAPINE

REACTIONS (18)
  - Arthralgia [None]
  - Product dose omission issue [None]
  - Product dose omission in error [None]
  - Insomnia [None]
  - Fatigue [None]
  - Nausea [None]
  - Dizziness [None]
  - Headache [None]
  - Amnesia [None]
  - Hiccups [None]
  - Balance disorder [None]
  - Condition aggravated [None]
  - Oxygen saturation decreased [None]
  - Dyspnoea [None]
  - Renal disorder [None]
  - Fluid intake reduced [None]
  - Illness [None]
  - Osteoarthritis [None]
